FAERS Safety Report 4768862-6 (Version None)
Quarter: 2005Q3

REPORT INFORMATION
  Report Type: 
  Country: None (occurrence: None)
  Receive Date: 20050914
  Receipt Date: 20050829
  Transmission Date: 20060218
  Serious: Yes (Hospitalization, Other)
  Sender: FDA-Public Use
  Company Number: 2005BI012418

PATIENT
  Sex: Female

DRUGS (7)
  1. AVONEX [Suspect]
     Indication: MULTIPLE SCLEROSIS
     Dosage: IM
     Route: 030
     Dates: start: 19990601, end: 20031006
  2. AVONEX [Suspect]
     Indication: MULTIPLE SCLEROSIS
     Dosage: IM
     Route: 030
     Dates: start: 20050301
  3. METOPROLOL [Concomitant]
  4. COZAAR [Concomitant]
  5. XANAX [Concomitant]
  6. OSCAL [Concomitant]
  7. MULTI-VITAMINS [Concomitant]

REACTIONS (4)
  - ATHEROSCLEROSIS [None]
  - HYPERTROPHIC CARDIOMYOPATHY [None]
  - RENAL ARTERY OCCLUSION [None]
  - SEPSIS [None]
